FAERS Safety Report 8267999 (Version 2)
Quarter: 2013Q2

REPORT INFORMATION
  Report Type: Spontaneous
  Country: US (occurrence: US)
  Receive Date: 20111129
  Receipt Date: 20130524
  Transmission Date: 20140414
  Serious: Yes (Other)
  Sender: FDA-Public Use
  Company Number: US-ASTRAZENECA-2011SE69711

PATIENT
  Age: 77 Year
  Sex: Male

DRUGS (2)
  1. TOPROL XL [Suspect]
     Route: 048
  2. CRESTOR [Suspect]
     Route: 048

REACTIONS (6)
  - Cerebrovascular accident [Unknown]
  - Dementia [Unknown]
  - Influenza [Unknown]
  - Hearing impaired [Unknown]
  - Confusional state [Unknown]
  - Diabetes mellitus [Unknown]
